FAERS Safety Report 19020183 (Version 2)
Quarter: 2024Q1

REPORT INFORMATION
  Report Type: Spontaneous
  Country: FR (occurrence: FR)
  Receive Date: 20210317
  Receipt Date: 20240302
  Transmission Date: 20240410
  Serious: Yes (Hospitalization)
  Sender: FDA-Public Use
  Company Number: None

PATIENT
  Age: 70 Year
  Sex: Male
  Weight: 125 kg

DRUGS (4)
  1. XARELTO [Suspect]
     Active Substance: RIVAROXABAN
     Indication: Atrial fibrillation
     Dosage: 20 MG, QD
     Route: 048
     Dates: end: 20210213
  2. URAPIDIL [Suspect]
     Active Substance: URAPIDIL
     Indication: Hypertension
     Dosage: 120 MG, QD
     Route: 048
     Dates: start: 20210129, end: 20210205
  3. FEBUXOSTAT [Concomitant]
     Active Substance: FEBUXOSTAT
  4. FUROSEMIDE [Concomitant]
     Active Substance: FUROSEMIDE

REACTIONS (2)
  - Blood blister [Recovered/Resolved with Sequelae]
  - Henoch-Schonlein purpura [Recovered/Resolved with Sequelae]

NARRATIVE: CASE EVENT DATE: 20210205
